FAERS Safety Report 4965846-X (Version None)
Quarter: 2006Q2

REPORT INFORMATION
  Report Type: 
  Country: None (occurrence: None)
  Receive Date: 20060406
  Receipt Date: 20060406
  Transmission Date: 20061013
  Serious: Yes (Other)
  Sender: FDA-Public Use
  Company Number: None

PATIENT
  Sex: Female
  Weight: 90.7194 kg

DRUGS (2)
  1. WELLBUTRIN SR [Suspect]
     Indication: DEPRESSION
     Dosage: 200MG   BID   PO
     Route: 048
     Dates: start: 20060320, end: 20060404
  2. WELLBUTRIN SR [Suspect]
     Indication: DYSTHYMIC DISORDER
     Dosage: 200MG   BID   PO
     Route: 048
     Dates: start: 20060320, end: 20060404

REACTIONS (3)
  - ABDOMINAL DISTENSION [None]
  - DIARRHOEA [None]
  - FLATULENCE [None]
